FAERS Safety Report 9257410 (Version 1)
Quarter: 2013Q1

REPORT INFORMATION
  Report Type: Spontaneous
  Country: US (occurrence: None)
  Receive Date: 20121212
  Receipt Date: 20121212
  Transmission Date: 20140127
  Serious: No
  Sender: FDA-Public Use
  Company Number: 1209USA005613

PATIENT
  Sex: Female

DRUGS (3)
  1. PEGINTRON [Suspect]
     Indication: HEPATITIS
     Route: 058
  2. VICTRELIS [Suspect]
     Indication: HEPATITIS
     Route: 048
  3. REBETOL [Suspect]
     Indication: HEPATITIS

REACTIONS (1)
  - Hepatitis C virus test positive [None]
